FAERS Safety Report 11737677 (Version 2)
Quarter: 2016Q1

REPORT INFORMATION
  Report Type: Report from Study
  Country: DE (occurrence: DE)
  Receive Date: 20151113
  Receipt Date: 20160108
  Transmission Date: 20160525
  Serious: Yes (Hospitalization, Other)
  Sender: FDA-Public Use
  Company Number: DE-BRISTOL-MYERS SQUIBB COMPANY-BMS-2015-077376

PATIENT
  Age: 73 Year
  Sex: Female
  Weight: 58 kg

DRUGS (11)
  1. CETUXIMAB [Suspect]
     Active Substance: CETUXIMAB
     Indication: COLORECTAL CANCER METASTATIC
     Dosage: 500 MG, Q2WK
     Route: 042
     Dates: start: 20150122, end: 20150701
  2. FOLINIC ACID [Suspect]
     Active Substance: LEUCOVORIN
     Dosage: UNK
     Route: 042
     Dates: start: 20150703
  3. IRINOTECAN [Suspect]
     Active Substance: IRINOTECAN
     Dosage: 135 MG/M2, Q2WK
     Route: 042
     Dates: start: 20150309
  4. 5 FLUOROURACIL                     /00098801/ [Suspect]
     Active Substance: FLUOROURACIL
     Indication: COLORECTAL CANCER METASTATIC
     Dosage: 2400 MG/M2, Q2WK
     Route: 042
     Dates: start: 20150122, end: 20150703
  5. FOLINIC ACID [Suspect]
     Active Substance: LEUCOVORIN
     Indication: COLORECTAL CANCER METASTATIC
     Dosage: 400 MG/M2, Q2WK
     Route: 042
     Dates: start: 20150122, end: 20150703
  6. 5 FLUOROURACIL                     /00098801/ [Suspect]
     Active Substance: FLUOROURACIL
     Dosage: 2100 MG/M2, Q2WK
     Route: 042
     Dates: start: 20150309
  7. FOLINIC ACID [Suspect]
     Active Substance: LEUCOVORIN
     Dosage: 300 MG, Q2WK
     Route: 042
     Dates: start: 20150309
  8. IRINOTECAN [Suspect]
     Active Substance: IRINOTECAN
     Indication: COLORECTAL CANCER METASTATIC
     Dosage: 180 MG/M2, Q2WK
     Route: 042
     Dates: start: 20150122, end: 20150703
  9. CETUXIMAB [Suspect]
     Active Substance: CETUXIMAB
     Dosage: 250 MG, QWK
     Route: 042
     Dates: start: 20150730, end: 20150915
  10. 5 FLUOROURACIL                     /00098801/ [Suspect]
     Active Substance: FLUOROURACIL
     Dosage: UNK
     Route: 042
     Dates: start: 20150703
  11. IRINOTECAN [Suspect]
     Active Substance: IRINOTECAN
     Dosage: UNK
     Route: 042
     Dates: start: 20150703

REACTIONS (3)
  - Pericarditis [Recovered/Resolved]
  - Overlap syndrome [Recovered/Resolved]
  - Myositis [Recovered/Resolved]

NARRATIVE: CASE EVENT DATE: 20150915
